FAERS Safety Report 15999009 (Version 4)
Quarter: 2019Q4

REPORT INFORMATION
  Report Type: Spontaneous
  Country: US (occurrence: US)
  Receive Date: 20190223
  Receipt Date: 20191125
  Transmission Date: 20200122
  Serious: No
  Sender: FDA-Public Use
  Company Number: US-JNJFOC-20190212554

PATIENT
  Age: 69 Year
  Sex: Female
  Weight: 95.34 kg

DRUGS (1)
  1. STELARA [Suspect]
     Active Substance: USTEKINUMAB
     Indication: PSORIASIS
     Route: 058

REACTIONS (3)
  - Drug ineffective [Unknown]
  - Blister [Not Recovered/Not Resolved]
  - Psoriasis [Unknown]
